FAERS Safety Report 8348384-6 (Version None)
Quarter: 2012Q2

REPORT INFORMATION
  Report Type: 
  Country: None (occurrence: None)
  Receive Date: 20120509
  Receipt Date: 20120508
  Transmission Date: 20120825
  Serious: Yes (Hospitalization)
  Sender: FDA-Public Use
  Company Number: IT-BAYER-2012-044891

PATIENT
  Age: 46 Year
  Sex: Male

DRUGS (1)
  1. ASPIRIN [Suspect]
     Dosage: 325 MG, ONCE
     Route: 048
     Dates: start: 20120222, end: 20120222

REACTIONS (3)
  - CHEST PAIN [None]
  - VOMITING [None]
  - ABDOMINAL PAIN UPPER [None]
